FAERS Safety Report 4486060-0 (Version None)
Quarter: 2004Q4

REPORT INFORMATION
  Report Type: 
  Country: None (occurrence: None)
  Receive Date: 20041021
  Receipt Date: 20041012
  Transmission Date: 20050328
  Serious: Yes (Life-Threatening, Hospitalization)
  Sender: FDA-Public Use
  Company Number: 2004077504

PATIENT
  Age: 81 Year
  Sex: Female

DRUGS (9)
  1. NORVASC [Suspect]
     Indication: HYPERTENSION
     Dosage: 5 MG (5 MG, 1 IN 1 D), ORAL
     Route: 048
     Dates: end: 20040510
  2. METOPROLOL TARTRATE [Suspect]
     Indication: HYPERTENSION
     Dosage: 100 MG (100 MG, 1 IN 1 D), ORAL
     Route: 048
     Dates: end: 20040510
  3. VERAPAMIL [Suspect]
     Indication: ATRIAL FIBRILLATION
     Dosage: 240 MG (120 MG, 2 IN 1 D), ORAL
     Route: 048
     Dates: end: 20040430
  4. DIGITOXIN TAB [Suspect]
     Indication: ILL-DEFINED DISORDER
  5. XIPAMIDE (XIPAMIDE) [Concomitant]
  6. RAMIPIRL (RAMIPRIL) [Concomitant]
  7. ATORVASTATIN CALCIUM [Concomitant]
  8. THYRAR (LEVOTHYROXINE, LIOTHYRONINE) [Concomitant]
  9. TORSEMIDE [Concomitant]

REACTIONS (5)
  - ATRIOVENTRICULAR BLOCK COMPLETE [None]
  - BRADYCARDIA [None]
  - DIZZINESS [None]
  - DRUG INTERACTION [None]
  - DYSPNOEA [None]
